FAERS Safety Report 7257617-9 (Version None)
Quarter: 2011Q1

REPORT INFORMATION
  Report Type: 
  Country: None (occurrence: None)
  Receive Date: 20110129
  Receipt Date: 20100519
  Transmission Date: 20110831
  Serious: No
  Sender: FDA-Public Use
  Company Number: US-ABBOTT-10P-163-0646794-00

PATIENT
  Sex: Female

DRUGS (6)
  1. ADALIMUMAB (HUMIRA PEN) [Concomitant]
     Indication: PSORIASIS
     Dosage: ONCE, 80 MG LOADING DOSE
     Route: 058
     Dates: start: 20100312, end: 20100312
  2. ADALIMUMAB (HUMIRA PEN) [Concomitant]
     Indication: PSORIATIC ARTHROPATHY
  3. HUMIRA [Suspect]
     Indication: PSORIASIS
     Route: 058
     Dates: start: 20100301, end: 20100428
  4. ADIPEX [Concomitant]
     Indication: PRODUCT USED FOR UNKNOWN INDICATION
  5. HUMIRA [Suspect]
     Indication: PSORIATIC ARTHROPATHY
  6. UNKNOWN HORMONE [Concomitant]
     Indication: PRODUCT USED FOR UNKNOWN INDICATION

REACTIONS (1)
  - PLATELET COUNT DECREASED [None]
